FAERS Safety Report 4781819-4 (Version None)
Quarter: 2005Q3

REPORT INFORMATION
  Report Type: 
  Country: None (occurrence: None)
  Receive Date: 20050927
  Receipt Date: 20050908
  Transmission Date: 20060218
  Serious: No
  Sender: FDA-Public Use
  Company Number: USA0509107952

PATIENT
  Age: 14 Year
  Sex: Female

DRUGS (1)
  1. STRATTERA [Suspect]

REACTIONS (2)
  - HEPATIC FAILURE [None]
  - PSYCHOTIC DISORDER [None]
